FAERS Safety Report 19826428 (Version 1)
Quarter: 2021Q3

REPORT INFORMATION
  Report Type: Spontaneous
  Country: US (occurrence: US)
  Receive Date: 20210913
  Receipt Date: 20210913
  Transmission Date: 20211014
  Serious: No
  Sender: FDA-Public Use
  Company Number: None

PATIENT
  Sex: Female

DRUGS (1)
  1. IV++ SCIG 26G 14MM HIGH FLO RMS2?2614 [Suspect]
     Active Substance: HUMAN IMMUNOGLOBULIN G
     Indication: IMMUNODEFICIENCY COMMON VARIABLE
     Dosage: ?          OTHER STRENGTH:RMS2?2614;?
     Route: 058
     Dates: start: 202008

REACTIONS (2)
  - Injection site pain [None]
  - Needle issue [None]
